FAERS Safety Report 23097107 (Version 1)
Quarter: 2023Q4

REPORT INFORMATION
  Report Type: Spontaneous
  Country: PT (occurrence: PT)
  Receive Date: 20231023
  Receipt Date: 20231023
  Transmission Date: 20240110
  Serious: Yes (Other)
  Sender: FDA-Public Use
  Company Number: None

PATIENT
  Age: 73 Year
  Sex: Male
  Weight: 80 kg

DRUGS (1)
  1. ULTRAVIST [Suspect]
     Active Substance: IOPROMIDE
     Indication: Scan with contrast
     Dosage: 70 CC FOR VASCULAR OPACIFICATION
     Route: 042
     Dates: start: 20231006, end: 20231006

REACTIONS (2)
  - Prurigo [Recovered/Resolved]
  - Contrast media reaction [Recovered/Resolved]

NARRATIVE: CASE EVENT DATE: 20231006
